FAERS Safety Report 6140225-0 (Version None)
Quarter: 2009Q2

REPORT INFORMATION
  Report Type: 
  Country: None (occurrence: None)
  Receive Date: 20090401
  Receipt Date: 20090324
  Transmission Date: 20091009
  Serious: No
  Sender: FDA-Public Use
  Company Number: US-B.I. PHARMACEUTICALS,INC./RIDGEFIELD-2009-BP-03686BP

PATIENT
  Sex: Male

DRUGS (6)
  1. ATROVENT HFA [Suspect]
     Indication: ASTHMA
     Dosage: 136MCG
     Route: 055
     Dates: start: 20090321
  2. COUMADIN [Concomitant]
     Indication: PROPHYLAXIS
     Dates: start: 19840101
  3. LOPRESSOR [Concomitant]
     Indication: HYPERTENSION
  4. PRILOSEC [Concomitant]
     Indication: GASTROOESOPHAGEAL REFLUX DISEASE
  5. ZOLOFT [Concomitant]
     Indication: ANXIETY
     Dates: start: 19990101
  6. IMDUR [Concomitant]
     Indication: ANGINA PECTORIS

REACTIONS (4)
  - MALAISE [None]
  - NAUSEA [None]
  - THROAT IRRITATION [None]
  - VOMITING [None]
